FAERS Safety Report 7446403-2 (Version None)
Quarter: 2011Q2

REPORT INFORMATION
  Report Type: 
  Country: None (occurrence: None)
  Receive Date: 20110429
  Receipt Date: 20100913
  Transmission Date: 20111010
  Serious: No
  Sender: FDA-Public Use
  Company Number: US-ASTRAZENECA-2010SE43018

PATIENT
  Sex: Female

DRUGS (1)
  1. NEXIUM [Suspect]
     Route: 048

REACTIONS (7)
  - SLEEP DISORDER DUE TO GENERAL MEDICAL CONDITION, INSOMNIA TYPE [None]
  - GASTROOESOPHAGEAL REFLUX DISEASE [None]
  - SKELETAL INJURY [None]
  - DYSPEPSIA [None]
  - DRUG DOSE OMISSION [None]
  - FALL [None]
  - INSOMNIA [None]
